FAERS Safety Report 11806584 (Version 1)
Quarter: 2015Q4

REPORT INFORMATION
  Report Type: Spontaneous
  Country: US (occurrence: US)
  Receive Date: 20151207
  Receipt Date: 20151207
  Transmission Date: 20160305
  Serious: Yes (Other)
  Sender: FDA-Public Use
  Company Number: US-GLAXOSMITHKLINE-US2015171250

PATIENT
  Sex: Female

DRUGS (3)
  1. PROPAFENONE HYDROCHLORIDE SR [Suspect]
     Active Substance: PROPAFENONE HYDROCHLORIDE
     Indication: ARRHYTHMIA
     Dosage: 325 MG, BID
     Route: 048
     Dates: start: 2011, end: 2011
  2. PROPAFENONE HYDROCHLORIDE SR [Suspect]
     Active Substance: PROPAFENONE HYDROCHLORIDE
     Dosage: 325 MG, BID
     Route: 048
  3. DIGOXIN. [Concomitant]
     Active Substance: DIGOXIN

REACTIONS (4)
  - Therapeutic response changed [Recovered/Resolved]
  - Drug ineffective [Recovered/Resolved]
  - Cardiac ablation [Recovered/Resolved]
  - Product substitution issue [Recovered/Resolved]

NARRATIVE: CASE EVENT DATE: 2011
